FAERS Safety Report 14721383 (Version 4)
Quarter: 2018Q2

REPORT INFORMATION
  Report Type: Report from Study
  Country: CN (occurrence: CN)
  Receive Date: 20180405
  Receipt Date: 20180622
  Transmission Date: 20180711
  Serious: Yes (Hospitalization)
  Sender: FDA-Public Use
  Company Number: CN-JNJFOC-20171116430

PATIENT
  Age: 49 Year
  Sex: Male
  Weight: 110 kg

DRUGS (36)
  1. HYDROCHLOROTHIAZIDE W/TELMISARTAN [Concomitant]
     Active Substance: HYDROCHLOROTHIAZIDE\TELMISARTAN
     Indication: HYPERTENSION
     Dosage: SLICE
     Route: 048
     Dates: start: 2017
  2. SODIUM BICARBONATE. [Concomitant]
     Active Substance: SODIUM BICARBONATE
     Indication: HYPERURICAEMIA
     Dosage: SLICE
     Route: 048
     Dates: start: 201410
  3. AMIODARONE HYDROCHLORIDE. [Concomitant]
     Active Substance: AMIODARONE HYDROCHLORIDE
     Indication: ATRIAL FIBRILLATION
     Route: 048
     Dates: start: 20180329
  4. GLUTAMINE [Concomitant]
     Active Substance: GLUTAMINE
     Route: 042
     Dates: start: 20171031, end: 20171031
  5. XARELTO [Suspect]
     Active Substance: RIVAROXABAN
     Indication: CEREBROVASCULAR ACCIDENT
     Route: 048
     Dates: start: 20171020, end: 20171224
  6. XARELTO [Suspect]
     Active Substance: RIVAROXABAN
     Indication: CEREBROVASCULAR ACCIDENT PROPHYLAXIS
     Route: 048
     Dates: start: 20171225, end: 20180109
  7. AMIODARONE HYDROCHLORIDE. [Concomitant]
     Active Substance: AMIODARONE HYDROCHLORIDE
     Indication: ATRIAL FIBRILLATION
     Route: 048
     Dates: start: 20171019, end: 20180329
  8. AMIODARONE HYDROCHLORIDE. [Concomitant]
     Active Substance: AMIODARONE HYDROCHLORIDE
     Indication: ATRIAL FIBRILLATION
     Route: 048
     Dates: start: 20171019, end: 20180329
  9. XARELTO [Suspect]
     Active Substance: RIVAROXABAN
     Indication: CEREBROVASCULAR ACCIDENT PROPHYLAXIS
     Route: 048
     Dates: start: 20171020, end: 20171224
  10. POTASSIUM CHLORIDE. [Concomitant]
     Active Substance: POTASSIUM CHLORIDE
     Indication: HYPOKALAEMIA
     Route: 048
     Dates: start: 20171031, end: 20171031
  11. POTASSIUM CHLORIDE. [Concomitant]
     Active Substance: POTASSIUM CHLORIDE
     Indication: HYPOKALAEMIA
     Route: 048
     Dates: start: 20171030, end: 20171030
  12. BENZBROMARON [Concomitant]
     Indication: HYPERURICAEMIA
     Dosage: SLICE
     Route: 048
     Dates: start: 2014
  13. ATORVASTATIN CALCIUM. [Concomitant]
     Active Substance: ATORVASTATIN CALCIUM
     Indication: CORONARY ARTERY DISEASE
     Dosage: AT NIGHT
     Route: 048
     Dates: start: 201710
  14. ISOSORBIDE MONONITRATE. [Concomitant]
     Active Substance: ISOSORBIDE MONONITRATE
     Indication: CORONARY ARTERY DISEASE
     Dosage: SLICE
     Route: 048
     Dates: start: 20171019, end: 20180329
  15. AMIODARONE HYDROCHLORIDE. [Concomitant]
     Active Substance: AMIODARONE HYDROCHLORIDE
     Indication: ATRIAL FIBRILLATION
     Route: 048
     Dates: start: 20180329
  16. POTASSIUM CITRATE. [Concomitant]
     Active Substance: POTASSIUM CITRATE
     Indication: HYPOKALAEMIA
     Dosage: SLICE
     Route: 048
     Dates: start: 20171019
  17. PANTOPRAZOLE SODIUM. [Concomitant]
     Active Substance: PANTOPRAZOLE SODIUM
     Route: 030
     Dates: start: 20171030, end: 20171031
  18. CALVAN [Concomitant]
     Route: 042
     Dates: start: 20171031, end: 20171031
  19. BISOPROLOL [Concomitant]
     Active Substance: BISOPROLOL
     Indication: CORONARY ARTERY DISEASE
     Dosage: SLICE
     Route: 048
     Dates: start: 2007
  20. FOLIC ACID. [Concomitant]
     Active Substance: FOLIC ACID
     Indication: HYPERTENSION
     Dosage: SLICE
     Route: 048
     Dates: start: 20171018
  21. AMIODARONE HYDROCHLORIDE. [Concomitant]
     Active Substance: AMIODARONE HYDROCHLORIDE
     Indication: ATRIAL FIBRILLATION
     Dosage: SLICE
     Route: 048
     Dates: start: 20171019
  22. NEXIUM [Concomitant]
     Active Substance: ESOMEPRAZOLE MAGNESIUM
     Route: 042
     Dates: start: 20171227, end: 20171227
  23. XARELTO [Suspect]
     Active Substance: RIVAROXABAN
     Indication: CEREBROVASCULAR ACCIDENT
     Route: 048
     Dates: start: 20180110
  24. POTASSIUM CHLORIDE. [Concomitant]
     Active Substance: POTASSIUM CHLORIDE
     Indication: HYPOKALAEMIA
     Dosage: SLICE
     Route: 048
     Dates: start: 20171019
  25. POTASSIUM CHLORIDE. [Concomitant]
     Active Substance: POTASSIUM CHLORIDE
     Indication: HYPOKALAEMIA
     Route: 048
     Dates: start: 20171227, end: 20171227
  26. POTASSIUM 99 [Concomitant]
     Route: 030
     Dates: start: 20171230, end: 20171231
  27. CALCIUM CHLORIDE. [Concomitant]
     Active Substance: CALCIUM CHLORIDE
     Route: 042
     Dates: start: 20171031, end: 20171031
  28. XARELTO [Suspect]
     Active Substance: RIVAROXABAN
     Indication: CEREBROVASCULAR ACCIDENT
     Route: 048
     Dates: start: 20171225, end: 20180109
  29. XARELTO [Suspect]
     Active Substance: RIVAROXABAN
     Indication: CEREBROVASCULAR ACCIDENT PROPHYLAXIS
     Route: 048
     Dates: start: 20180110
  30. CEFEPIME HYDROCHLORIDE. [Concomitant]
     Active Substance: CEFEPIME HYDROCHLORIDE
     Route: 042
     Dates: start: 20171226, end: 20171226
  31. BISOPROLOL FUMARATE. [Concomitant]
     Active Substance: BISOPROLOL FUMARATE
     Route: 048
     Dates: start: 20180321
  32. NIFEDIPINE. [Concomitant]
     Active Substance: NIFEDIPINE
     Indication: HYPERTENSION
     Route: 048
     Dates: start: 2007
  33. AMIODARONE HYDROCHLORIDE. [Concomitant]
     Active Substance: AMIODARONE HYDROCHLORIDE
     Indication: ATRIAL FIBRILLATION
     Dosage: SLICE
     Route: 048
     Dates: start: 20171019
  34. TRIMETAZIDINE HYDROCHLORIDE [Concomitant]
     Active Substance: TRIMETAZIDINE DIHYDROCHLORIDE
     Indication: CORONARY ARTERY DISEASE
     Dosage: SLICE
     Route: 048
     Dates: start: 20171019
  35. BIAPENEM [Concomitant]
     Active Substance: BIAPENEM
     Route: 030
     Dates: start: 20171030, end: 20171030
  36. VITAMINS NOS [Concomitant]
     Active Substance: VITAMINS
     Route: 030
     Dates: start: 20171030, end: 20171030

REACTIONS (6)
  - Cholelithiasis [Recovered/Resolved]
  - Cholangitis acute [Recovered/Resolved]
  - Obstructive pancreatitis [Recovered/Resolved]
  - Cholecystitis acute [Recovered/Resolved]
  - Arteriosclerosis coronary artery [Recovered/Resolved]
  - Cholelithiasis [Recovered/Resolved]

NARRATIVE: CASE EVENT DATE: 20171030
